FAERS Safety Report 5041685-9 (Version None)
Quarter: 2006Q2

REPORT INFORMATION
  Report Type: 
  Country: None (occurrence: None)
  Receive Date: 20060630
  Receipt Date: 20060619
  Transmission Date: 20061013
  Serious: Yes (Death)
  Sender: FDA-Public Use
  Company Number: US017814

PATIENT
  Age: 20 Year
  Sex: Male

DRUGS (1)
  1. ACTIQ [Suspect]

REACTIONS (3)
  - INCORRECT DOSE ADMINISTERED [None]
  - SELF-MEDICATION [None]
  - THEFT [None]
